FAERS Safety Report 9717252 (Version 1)
Quarter: 2013Q4

REPORT INFORMATION
  Report Type: Spontaneous
  Country: NL (occurrence: NL)
  Receive Date: 20131127
  Receipt Date: 20131127
  Transmission Date: 20140711
  Serious: Yes (Other)
  Sender: FDA-Public Use
  Company Number: NL-ACTAVIS-2013-21436

PATIENT
  Age: 33 Year
  Sex: Male

DRUGS (6)
  1. PREDNISOLON [Suspect]
     Indication: LARYNGITIS
     Dosage: 40 MG, DAILY
     Route: 065
     Dates: start: 201306
  2. PREDNISOLON [Suspect]
     Indication: SINUSITIS
     Dosage: 30 MG, DAILY
     Route: 065
     Dates: start: 201302
  3. PREDNISOLON [Suspect]
     Dosage: 30 MG, DAILY
     Route: 065
  4. PREDNISOLON [Suspect]
     Dosage: 30 MG, DAILY
     Route: 065
     Dates: start: 201305
  5. FLUCLOXACILLINE [Suspect]
     Indication: LARYNGITIS
     Dosage: 500 MG, UNK
     Route: 065
     Dates: start: 201306
  6. FLUCLOXACILLINE [Suspect]
     Indication: SINUSITIS

REACTIONS (1)
  - Thirst [Not Recovered/Not Resolved]
